FAERS Safety Report 8166229-4 (Version None)
Quarter: 2012Q1

REPORT INFORMATION
  Report Type: 
  Country: None (occurrence: None)
  Receive Date: 20120227
  Receipt Date: 20110516
  Transmission Date: 20120608
  Serious: No
  Sender: FDA-Public Use
  Company Number: US-MYLANLABS-2011S1010041

PATIENT
  Age: 35 Year
  Sex: Female

DRUGS (10)
  1. MESTINON [Concomitant]
  2. PREMPRO [Concomitant]
  3. PRAVASTATIN [Concomitant]
  4. NUVIGIL [Concomitant]
  5. FOLIC ACID [Concomitant]
  6. AMNESTEEM [Suspect]
     Indication: ACNE
     Route: 048
     Dates: start: 20110201, end: 20110201
  7. METHOTREXATE [Concomitant]
  8. AMNESTEEM [Suspect]
     Route: 048
     Dates: start: 20110401, end: 20110401
  9. XYZAL [Concomitant]
  10. VITAMIN TAB [Concomitant]

REACTIONS (5)
  - LETHARGY [None]
  - AFFECT LABILITY [None]
  - DEPRESSION [None]
  - AGITATION [None]
  - MEMORY IMPAIRMENT [None]
